FAERS Safety Report 26093783 (Version 1)
Quarter: 2025Q4

REPORT INFORMATION
  Report Type: Spontaneous
  Country: EU (occurrence: EU)
  Receive Date: 20251126
  Receipt Date: 20251126
  Transmission Date: 20260118
  Serious: Yes (Other)
  Sender: CHEPLAPHARM
  Company Number: None

PATIENT
  Age: 38 Year
  Sex: Male

DRUGS (7)
  1. CLONAZEPAM [Suspect]
     Active Substance: CLONAZEPAM
     Indication: Suicidal ideation
     Dosage: TAKEN 20 RIVOTRIL TABLETS OF 2 MG EACH
     Route: 048
     Dates: start: 20250912, end: 20250912
  2. CLONAZEPAM [Suspect]
     Active Substance: CLONAZEPAM
     Indication: Schizophrenia
     Dosage: TAKEN 20 RIVOTRIL TABLETS OF 2 MG EACH
     Route: 048
     Dates: start: 20250912, end: 20250912
  3. FLUPHENAZINE [Suspect]
     Active Substance: FLUPHENAZINE
     Indication: Suicidal ideation
     Dosage: 20 MODITEN 2.5 MG
     Route: 048
     Dates: start: 20250912, end: 20250912
  4. FLUPHENAZINE [Suspect]
     Active Substance: FLUPHENAZINE
     Indication: Schizophrenia
     Dosage: 20 MODITEN 2.5 MG
     Route: 048
     Dates: start: 20250912, end: 20250912
  5. RISPERIDONE [Suspect]
     Active Substance: RISPERIDONE
     Indication: Schizophrenia
     Route: 048
  6. ZOLPIDEM TARTRATE [Suspect]
     Active Substance: ZOLPIDEM TARTRATE
     Indication: Schizophrenia
     Dosage: UNK
     Route: 048
  7. CARIPRAZINE [Suspect]
     Active Substance: CARIPRAZINE
     Indication: Schizophrenia
     Dosage: UNK
     Route: 048

REACTIONS (7)
  - Suicide attempt [Unknown]
  - Depressed level of consciousness [Unknown]
  - Hypotension [Unknown]
  - Heart rate decreased [Unknown]
  - Intentional overdose [Unknown]
  - Blood pressure immeasurable [Unknown]
  - Off label use [Unknown]

NARRATIVE: CASE EVENT DATE: 20250912
